FAERS Safety Report 8475004-2 (Version None)
Quarter: 2012Q2

REPORT INFORMATION
  Report Type: 
  Country: None (occurrence: None)
  Receive Date: 20120628
  Receipt Date: 20120619
  Transmission Date: 20120825
  Serious: Yes (Life-Threatening, Hospitalization, Other)
  Sender: FDA-Public Use
  Company Number: US-BAYER-2012-062469

PATIENT
  Age: 41 Year
  Sex: Female
  Weight: 55.782 kg

DRUGS (10)
  1. VICODIN [Concomitant]
     Dosage: 5-500 MG
     Route: 048
  2. COMPAZINE [Concomitant]
     Dosage: 10 MG, UNK
     Route: 042
     Dates: start: 20090920
  3. DILAUDID [Concomitant]
     Dosage: 1 MG, UNK
     Route: 042
     Dates: start: 20090920
  4. CASPOFUNGIN ACETATE [Concomitant]
  5. ZOSYN [Concomitant]
     Dosage: UNK
     Dates: start: 20091004
  6. BENADRYL [Concomitant]
     Dosage: 25 MG, UNK
     Route: 042
     Dates: start: 20090920
  7. MOXIFLOXACIN [Concomitant]
     Dosage: UNK
     Dates: start: 20090930, end: 20091005
  8. VANCOMYCIN [Concomitant]
     Dosage: UNK
     Dates: start: 20090930
  9. CEFEPIME [Concomitant]
     Dosage: UNK
     Dates: start: 20090930
  10. YASMIN [Suspect]

REACTIONS (3)
  - MESENTERIC VEIN THROMBOSIS [None]
  - GALLBLADDER DISORDER [None]
  - PORTAL VEIN THROMBOSIS [None]
